FAERS Safety Report 4694084-3 (Version None)
Quarter: 2005Q2

REPORT INFORMATION
  Report Type: 
  Country: None (occurrence: None)
  Receive Date: 20050616
  Receipt Date: 20050607
  Transmission Date: 20051028
  Serious: Yes (Hospitalization, Disabling, Other)
  Sender: FDA-Public Use
  Company Number: 2004058034

PATIENT
  Age: 50 Year
  Sex: Male
  Weight: 79.95 kg

DRUGS (18)
  1. NEURONTIN [Suspect]
     Indication: BIPOLAR DISORDER
     Dosage: 1800 MG
     Dates: start: 20000929
  2. IBUPROFEN [Suspect]
     Indication: PAIN
     Dosage: 2400 MG (600 MG, 4 IN 1 D), ORAL
     Route: 048
  3. SOMA [Suspect]
     Indication: ILL-DEFINED DISORDER
  4. OLANZAPINE [Concomitant]
  5. TEMAZEPAM [Concomitant]
  6. CLONAZEPAM [Concomitant]
  7. BUPROPION (BUPROPION) [Concomitant]
  8. DEPAKOTE [Concomitant]
  9. EFFEXOR XR [Concomitant]
  10. ZOLOFT [Concomitant]
  11. SERZONE [Concomitant]
  12. AMBIEN [Concomitant]
  13. GABITRIL [Concomitant]
  14. RISPERIDONE [Concomitant]
  15. GRISEOFULVIN [Concomitant]
  16. CLOTRIMAZOLE (CLOTRIMAZOLE) [Concomitant]
  17. VYTONE (DIIODOHYDROXYQUINOLINE, HYDROCORTISONE) [Concomitant]
  18. ATIVAN [Concomitant]

REACTIONS (57)
  - ABNORMAL BEHAVIOUR [None]
  - AFFECT LABILITY [None]
  - AGGRESSION [None]
  - AMNESIA [None]
  - ANGER [None]
  - ANXIETY [None]
  - ARTHRALGIA [None]
  - BACK PAIN [None]
  - BENIGN PROSTATIC HYPERPLASIA [None]
  - CHEST PAIN [None]
  - CONCUSSION [None]
  - CONFUSIONAL STATE [None]
  - DEFORMITY [None]
  - DELUSION [None]
  - DELUSIONAL PERCEPTION [None]
  - DENTAL DISCOMFORT [None]
  - DEPRESSED MOOD [None]
  - DRUG INEFFECTIVE [None]
  - DRUG SCREEN POSITIVE [None]
  - EARLY MORNING AWAKENING [None]
  - FEELING HOT [None]
  - GRANDIOSITY [None]
  - HALLUCINATION [None]
  - HALLUCINATION, AUDITORY [None]
  - HEADACHE [None]
  - HYPERHIDROSIS [None]
  - HYPOAESTHESIA [None]
  - HYPOAESTHESIA ORAL [None]
  - HYPOMANIA [None]
  - INJURY [None]
  - INSOMNIA [None]
  - LIMB INJURY [None]
  - LIP BLISTER [None]
  - LUNG NEOPLASM [None]
  - MEMORY IMPAIRMENT [None]
  - NEPHRITIS INTERSTITIAL [None]
  - NERVOUSNESS [None]
  - OFF LABEL USE [None]
  - OVERDOSE [None]
  - PAIN [None]
  - PAIN IN EXTREMITY [None]
  - PARAESTHESIA [None]
  - PARAESTHESIA ORAL [None]
  - RESTLESSNESS [None]
  - ROAD TRAFFIC ACCIDENT [None]
  - SLEEP DISORDER [None]
  - SPEECH DISORDER [None]
  - SPINAL OSTEOARTHRITIS [None]
  - STRESS [None]
  - SUICIDAL IDEATION [None]
  - SUICIDE ATTEMPT [None]
  - SWELLING FACE [None]
  - SYNCOPE [None]
  - TEARFULNESS [None]
  - THINKING ABNORMAL [None]
  - VICTIM OF SEXUAL ABUSE [None]
  - VISION BLURRED [None]
